FAERS Safety Report 7807165-X (Version None)
Quarter: 2011Q4

REPORT INFORMATION
  Report Type: 
  Country: None (occurrence: None)
  Receive Date: 20111011
  Receipt Date: 20110929
  Transmission Date: 20120403
  Serious: Yes (Hospitalization, Other)
  Sender: FDA-Public Use
  Company Number: PHHY2010MX69416

PATIENT
  Sex: Female

DRUGS (1)
  1. DIOVAN HCT [Suspect]
     Indication: HYPERTENSION
     Dosage: 2 DF(80/12.5 MG), DIALY
     Route: 048

REACTIONS (6)
  - FIBROSIS [None]
  - DIARRHOEA [None]
  - RENAL FAILURE [None]
  - CYSTITIS [None]
  - VOMITING [None]
  - BLOOD PRESSURE INCREASED [None]
